FAERS Safety Report 8954413 (Version 2)
Quarter: 2013Q1

REPORT INFORMATION
  Report Type: Spontaneous
  Country: US (occurrence: US)
  Receive Date: 20121207
  Receipt Date: 20130123
  Transmission Date: 20140127
  Serious: Yes (Hospitalization, Disabling)
  Sender: FDA-Public Use
  Company Number: US-CELGENEUS-163-21880-12102680

PATIENT
  Age: 50 Year
  Sex: Female

DRUGS (5)
  1. REVLIMID [Suspect]
     Indication: PLASMA CELL MYELOMA
     Dosage: 25 MILLIGRAM
     Route: 048
     Dates: start: 20120826, end: 20120927
  2. DECADRON [Concomitant]
     Indication: PLASMA CELL MYELOMA
     Dosage: 40 MILLIGRAM
     Route: 048
     Dates: start: 20120826
  3. BYSTOLIC [Concomitant]
     Indication: HYPERTENSION
     Dosage: 10 MILLIGRAM
     Route: 048
     Dates: start: 20120824
  4. LOSARTAN [Concomitant]
     Indication: HYPERTENSION
     Dosage: 50 MILLIGRAM
     Route: 048
  5. CHLORHEXIDINE [Concomitant]
     Indication: HYPERTENSION
     Dosage: 25 MILLIGRAM
     Route: 048

REACTIONS (10)
  - Cholangiocarcinoma [Recovering/Resolving]
  - Bile duct obstruction [Unknown]
  - Cholangitis [Unknown]
  - Hypotension [Recovering/Resolving]
  - Cytomegalovirus infection [Recovering/Resolving]
  - Septic shock [Unknown]
  - Renal failure [Unknown]
  - Anaemia [Recovered/Resolved]
  - Herpes simplex [Recovering/Resolving]
  - Malnutrition [Recovering/Resolving]
